FAERS Safety Report 9400505 (Version 1)
Quarter: 2013Q3

REPORT INFORMATION
  Report Type: Spontaneous
  Country: FR (occurrence: FR)
  Receive Date: 20130711
  Receipt Date: 20130711
  Transmission Date: 20140515
  Serious: Yes (Other)
  Sender: FDA-Public Use
  Company Number: 222253

PATIENT
  Age: 82 Year
  Sex: Female

DRUGS (6)
  1. INNOHEP [Suspect]
     Indication: THROMBOPHLEBITIS SUPERFICIAL
     Route: 058
  2. AMIODARONE [Concomitant]
  3. ATENOLOL [Concomitant]
  4. VENLAFAXINE (VENLAFAXINE) [Concomitant]
  5. ALPRAZOLAM (ALPRAZOLAM) [Concomitant]
  6. ASPIRIN [Concomitant]

REACTIONS (3)
  - Off label use [None]
  - Blood blister [None]
  - Injection site haematoma [None]
